FAERS Safety Report 10030990 (Version 3)
Quarter: 2014Q2

REPORT INFORMATION
  Report Type: Report from Study
  Country: JP (occurrence: JP)
  Receive Date: 20140324
  Receipt Date: 20140429
  Transmission Date: 20141212
  Serious: Yes (Life-Threatening, Hospitalization)
  Sender: FDA-Public Use
  Company Number: JP-AMGEN-JPNCT2013054188

PATIENT
  Age: 69 Year
  Sex: Male
  Weight: 62 kg

DRUGS (18)
  1. ROMIPLOSTIM - KHK [Suspect]
     Indication: IMMUNE THROMBOCYTOPENIC PURPURA
     Dosage: 5 MUG/KG, QWK
     Route: 058
     Dates: start: 20111025
  2. ARANESP [Concomitant]
     Indication: RENAL FAILURE CHRONIC
     Dosage: UNK
     Route: 065
  3. PREDONINE [Concomitant]
     Indication: IMMUNE THROMBOCYTOPENIC PURPURA
     Dosage: 10 MG, UNK
     Route: 048
  4. LOXONIN [Concomitant]
     Indication: LUNG ADENOCARCINOMA
     Dosage: UNK
     Route: 048
  5. MUCOSTA [Concomitant]
     Indication: PROPHYLAXIS
     Dosage: UNK
     Route: 048
  6. ADALAT [Concomitant]
     Dosage: UNK
  7. SELBEX [Concomitant]
     Indication: PROPHYLAXIS
     Dosage: UNK
     Route: 048
  8. FOLIAMIN [Concomitant]
     Indication: ANAEMIA FOLATE DEFICIENCY
     Dosage: UNK
     Route: 048
  9. ZYLORIC [Concomitant]
     Indication: HYPERURICAEMIA
     Dosage: UNK
     Route: 048
  10. FERROMIA [Concomitant]
     Indication: IRON DEFICIENCY ANAEMIA
     Dosage: UNK
     Route: 048
  11. GASTER [Concomitant]
     Indication: PROPHYLAXIS
     Dosage: UNK
     Route: 048
  12. ARGAMATE [Concomitant]
     Indication: RENAL FAILURE CHRONIC
     Dosage: UNK
     Route: 048
  13. ADONA [Concomitant]
     Indication: COLITIS ULCERATIVE
     Dosage: UNK
     Route: 048
  14. ITRIZOLE [Concomitant]
     Indication: PROPHYLAXIS
     Dosage: UNK
     Route: 048
  15. LAMISIL                            /00992601/ [Concomitant]
     Indication: FUNGAL SKIN INFECTION
     Dosage: UNK
  16. GASTER D [Concomitant]
     Indication: PROPHYLAXIS
     Dosage: UNK
     Route: 048
  17. BAKTAR [Concomitant]
     Indication: PROPHYLAXIS
     Dosage: UNK
     Route: 048
  18. LASIX                              /00032601/ [Concomitant]
     Indication: RENAL FAILURE CHRONIC
     Dosage: UNK
     Route: 048

REACTIONS (6)
  - Epistaxis [Recovered/Resolved]
  - Mouth haemorrhage [Recovered/Resolved]
  - Pneumonia bacterial [Recovered/Resolved]
  - Pneumonia fungal [Recovered/Resolved]
  - Pneumonia [Recovered/Resolved]
  - Pseudomembranous colitis [Recovered/Resolved]
